FAERS Safety Report 24273788 (Version 1)
Quarter: 2024Q3

REPORT INFORMATION
  Report Type: Spontaneous
  Country: US (occurrence: US)
  Receive Date: 20240902
  Receipt Date: 20240902
  Transmission Date: 20241017
  Serious: No
  Sender: ASTELLAS
  Company Number: US-ASTELLAS-2024US016552

PATIENT
  Age: 79 Year
  Sex: Male

DRUGS (2)
  1. XTANDI [Suspect]
     Active Substance: ENZALUTAMIDE
     Indication: Prostate cancer
     Dosage: 160 MG, UNKNOWN FREQ.
     Route: 065
     Dates: start: 202404
  2. ORGOVYX [Suspect]
     Active Substance: RELUGOLIX
     Indication: Prostate cancer
     Dosage: 120 MG, ONCE DAILY
     Route: 048
     Dates: start: 202404

REACTIONS (3)
  - Gait disturbance [Unknown]
  - Blood pressure systolic increased [Unknown]
  - Fatigue [Unknown]
